FAERS Safety Report 5884256-4 (Version None)
Quarter: 2008Q3

REPORT INFORMATION
  Report Type: 
  Country: None (occurrence: None)
  Receive Date: 20080915
  Receipt Date: 20080903
  Transmission Date: 20090109
  Serious: Yes (Hospitalization)
  Sender: FDA-Public Use
  Company Number: CA-GENENTECH-251347

PATIENT
  Sex: Male
  Weight: 79 kg

DRUGS (18)
  1. BLINDED BEVACIZUMAB [Suspect]
     Indication: NON-HODGKIN'S LYMPHOMA
     Dosage: UNK MG, Q3W
     Route: 042
     Dates: start: 20070726
  2. CYCLOPHOSPHAMIDE [Suspect]
     Indication: NON-HODGKIN'S LYMPHOMA
     Dosage: UNK MG, Q3W
     Route: 042
     Dates: start: 20070726
  3. DOXORUBICIN HCL [Suspect]
     Indication: NON-HODGKIN'S LYMPHOMA
     Dosage: UNK MG, Q3W
     Route: 042
     Dates: start: 20070726
  4. BLINDED PLACEBO [Suspect]
     Indication: NON-HODGKIN'S LYMPHOMA
     Dosage: UNK MG, Q3W
     Route: 042
     Dates: start: 20070726
  5. PREDNISONE TAB [Suspect]
     Indication: NON-HODGKIN'S LYMPHOMA
     Dosage: UNK MG, Q3W
     Route: 042
     Dates: start: 20070726
  6. BLINDED RITUXIMAB [Suspect]
     Indication: NON-HODGKIN'S LYMPHOMA
     Dosage: UNK MG, Q3W
     Route: 042
     Dates: start: 20070726
  7. VINCRISTINE [Suspect]
     Indication: NON-HODGKIN'S LYMPHOMA
     Dosage: UNK MG, Q3W
     Route: 042
     Dates: start: 20070726
  8. RITUXIMAB [Suspect]
     Indication: NON-HODGKIN'S LYMPHOMA
     Dosage: 785 MG, Q3W
     Route: 042
     Dates: start: 20070727
  9. CYCLOPHOSPHAMIDE [Suspect]
     Indication: NON-HODGKIN'S LYMPHOMA
     Dosage: 1570 MG, Q3W
     Route: 042
     Dates: start: 20070727
  10. DOXORUBICIN HCL [Suspect]
     Indication: NON-HODGKIN'S LYMPHOMA
     Dosage: UNK, Q3W
     Route: 042
     Dates: start: 20070727
  11. DOXORUBICIN HCL [Suspect]
     Dosage: 75 MG, Q3W
     Dates: start: 20071129
  12. VINCRISTINE [Suspect]
     Indication: NON-HODGKIN'S LYMPHOMA
     Dosage: 2 MG, Q3W
     Route: 042
     Dates: start: 20070727
  13. VINCRISTINE [Suspect]
     Dosage: 1 MG, Q3W
     Dates: start: 20071129
  14. PREDNISONE TAB [Suspect]
     Indication: NON-HODGKIN'S LYMPHOMA
     Dosage: 100 MG, UNK
     Route: 048
     Dates: start: 20070727
  15. DICLOFENAC SODIUM [Concomitant]
     Indication: DRUG USE FOR UNKNOWN INDICATION
     Dosage: UNK, UNK
     Dates: start: 20070115
  16. LEVOFLOXACIN [Concomitant]
     Indication: DRUG USE FOR UNKNOWN INDICATION
     Dates: start: 20071022
  17. ARANESP [Concomitant]
     Indication: DRUG USE FOR UNKNOWN INDICATION
     Dosage: UNK, UNK
     Dates: start: 20071005
  18. NEUPOGEN [Concomitant]
     Indication: DRUG USE FOR UNKNOWN INDICATION
     Dosage: UNK, UNK
     Dates: start: 20071114, end: 20071123

REACTIONS (1)
  - FEBRILE NEUTROPENIA [None]
